FAERS Safety Report 9158453 (Version 1)
Quarter: 2013Q1

REPORT INFORMATION
  Report Type: Spontaneous
  Country: FR (occurrence: FR)
  Receive Date: 20130312
  Receipt Date: 20130312
  Transmission Date: 20140127
  Serious: Yes (Hospitalization)
  Sender: FDA-Public Use
  Company Number: FR-TEVA-389333ISR

PATIENT
  Age: 60 Year
  Sex: Female

DRUGS (7)
  1. ESTREVA [Suspect]
     Dosage: 1 MILLIGRAM DAILY;
     Route: 003
     Dates: start: 201209, end: 20121119
  2. DUPHASTON [Suspect]
     Route: 048
     Dates: start: 201209, end: 20121119
  3. TAHOR [Suspect]
     Dosage: 40 MILLIGRAM DAILY;
     Route: 048
  4. MONOTILDIEM LP [Suspect]
     Dosage: 200 MILLIGRAM DAILY;
     Route: 048
  5. EZTROL [Suspect]
     Dosage: 1 DOSAGE FORMS DAILY;
     Route: 048
  6. KARDEGIC [Suspect]
     Dosage: 75 MILLIGRAM DAILY;
     Route: 048
  7. NATISPRAY [Concomitant]
     Dosage: IF NEEDED

REACTIONS (1)
  - Optic neuritis [Not Recovered/Not Resolved]
